FAERS Safety Report 12092993 (Version 1)
Quarter: 2016Q1

REPORT INFORMATION
  Report Type: Spontaneous
  Country: US (occurrence: US)
  Receive Date: 20160219
  Receipt Date: 20160219
  Transmission Date: 20160526
  Serious: No
  Sender: FDA-Public Use
  Company Number: US-PFIZER INC-2016040079

PATIENT
  Sex: Male

DRUGS (1)
  1. NITROSTAT [Suspect]
     Active Substance: NITROGLYCERIN
     Dosage: UNK

REACTIONS (1)
  - Chest pain [Unknown]
